FAERS Safety Report 7481040-5 (Version None)
Quarter: 2011Q2

REPORT INFORMATION
  Report Type: 
  Country: None (occurrence: None)
  Receive Date: 20110516
  Receipt Date: 20081127
  Transmission Date: 20111010
  Serious: Yes (Death, Hospitalization, Other)
  Sender: FDA-Public Use
  Company Number: US-BAYER-200839323NA

PATIENT
  Age: 70 Year
  Sex: Male
  Weight: 79 kg

DRUGS (10)
  1. HEPARIN [Concomitant]
     Dosage: UNK
     Route: 042
     Dates: start: 20061116
  2. TRASYLOL [Suspect]
     Indication: CORONARY ARTERY BYPASS
     Dosage: .INITIAL TEST DOSE OF 1 ML
     Route: 042
     Dates: start: 20061116
  3. AMIODARONE HCL [Concomitant]
     Dosage: 1.0MG/MIN
     Route: 042
     Dates: start: 20061116
  4. FRESH FROZEN PLASMA [Concomitant]
  5. CRYOPRECIPITATES [Concomitant]
  6. ETODOLAC [Concomitant]
     Dosage: 400MG
     Dates: start: 20060720
  7. TRASYLOL [Suspect]
     Dosage: 100 ML PUMP PRIME
     Route: 042
     Dates: start: 20061116
  8. LIPITOR [Concomitant]
     Dosage: 20MG DAILY
     Route: 048
  9. RED BLOOD CELLS [Concomitant]
  10. INSULIN [INSULIN] [Concomitant]
     Dosage: UNK
     Route: 042
     Dates: start: 20061116

REACTIONS (13)
  - MULTI-ORGAN FAILURE [None]
  - ANHEDONIA [None]
  - RENAL FAILURE [None]
  - EMOTIONAL DISTRESS [None]
  - STRESS [None]
  - UNEVALUABLE EVENT [None]
  - INJURY [None]
  - RENAL INJURY [None]
  - FEAR [None]
  - PAIN [None]
  - DEATH [None]
  - ANXIETY [None]
  - RENAL IMPAIRMENT [None]
